FAERS Safety Report 15209216 (Version 2)
Quarter: 2018Q3

REPORT INFORMATION
  Report Type: Spontaneous
  Country: KR (occurrence: KR)
  Receive Date: 20180727
  Receipt Date: 20180813
  Transmission Date: 20181010
  Serious: Yes (Other)
  Sender: FDA-Public Use
  Company Number: KR-AMGEN-KORSP2018101229

PATIENT
  Age: 72 Year
  Sex: Male

DRUGS (4)
  1. KYPROLIS [Suspect]
     Active Substance: CARFILZOMIB
     Dosage: 56 UNK, UNK
     Route: 065
     Dates: start: 2018
  2. KYPROLIS [Suspect]
     Active Substance: CARFILZOMIB
     Indication: PLASMA CELL MYELOMA
     Dosage: UNK
     Route: 065
     Dates: start: 20180205
  3. KYPROLIS [Suspect]
     Active Substance: CARFILZOMIB
     Dosage: 45 UNK, UNK
     Route: 065
     Dates: start: 20180601
  4. DEXAMETHASONE. [Concomitant]
     Active Substance: DEXAMETHASONE
     Indication: PLASMA CELL MYELOMA
     Dosage: UNK
     Dates: start: 20180205

REACTIONS (5)
  - Neuropathy peripheral [Unknown]
  - Infection [Unknown]
  - Neutrophil count abnormal [Unknown]
  - Fatigue [Unknown]
  - Pneumonia [Unknown]

NARRATIVE: CASE EVENT DATE: 2018
